FAERS Safety Report 7570611-3 (Version None)
Quarter: 2011Q2

REPORT INFORMATION
  Report Type: 
  Country: None (occurrence: None)
  Receive Date: 20110624
  Receipt Date: 20110412
  Transmission Date: 20111010
  Serious: No
  Sender: FDA-Public Use
  Company Number: US-ALLERGAN-1105131US

PATIENT
  Age: 60 Year
  Sex: Female

DRUGS (3)
  1. LATISSE [Suspect]
     Dosage: UNK
     Dates: start: 20110201
  2. LATISSE [Suspect]
     Dosage: UNK
     Dates: start: 20100601, end: 20110101
  3. LATISSE [Suspect]
     Indication: GROWTH OF EYELASHES
     Dosage: 1 GTT, QHS
     Dates: start: 20110101

REACTIONS (3)
  - MADAROSIS [None]
  - WRONG TECHNIQUE IN DRUG USAGE PROCESS [None]
  - HAIR GROWTH ABNORMAL [None]
